FAERS Safety Report 21536045 (Version 1)
Quarter: 2022Q4

REPORT INFORMATION
  Report Type: Spontaneous
  Country: PT (occurrence: PT)
  Receive Date: 20221101
  Receipt Date: 20221101
  Transmission Date: 20230112
  Serious: Yes (Other)
  Sender: FDA-Public Use
  Company Number: PT-MYLANLABS-2022M1118552

PATIENT
  Age: 62 Year
  Sex: Male

DRUGS (2)
  1. SUNITINIB [Suspect]
     Active Substance: SUNITINIB
     Indication: Metastatic renal cell carcinoma
     Dosage: 50 MILLIGRAM (50MG SUNITINIB DAILY 2 WEEKS EVERY 3 WEEKS)
     Route: 065
  2. SUNITINIB [Suspect]
     Active Substance: SUNITINIB
     Dosage: 37.5 MILLIGRAM, QD (DAILY DOSE OF 37.5MG )
     Route: 065

REACTIONS (3)
  - Hypothyroidism [Unknown]
  - Hypertension [Unknown]
  - Off label use [Unknown]
